FAERS Safety Report 5269091-2 (Version None)
Quarter: 2007Q1

REPORT INFORMATION
  Report Type: 
  Country: None (occurrence: None)
  Receive Date: 20070319
  Receipt Date: 20070307
  Transmission Date: 20070707
  Serious: Yes (Hospitalization)
  Sender: FDA-Public Use
  Company Number: JP-ROCHE-487082

PATIENT
  Age: 17 Year
  Sex: Female

DRUGS (1)
  1. TAMIFLU [Suspect]
     Indication: INFLUENZA
     Dosage: UNCERTAINTY.
     Route: 048
     Dates: start: 20070306, end: 20070307

REACTIONS (2)
  - ABNORMAL BEHAVIOUR [None]
  - URINARY INCONTINENCE [None]
